FAERS Safety Report 21146523 (Version 1)
Quarter: 2022Q3

REPORT INFORMATION
  Report Type: Spontaneous
  Country: DE (occurrence: DE)
  Receive Date: 20220729
  Receipt Date: 20220729
  Transmission Date: 20221027
  Serious: No
  Sender: FDA-Public Use
  Company Number: None

PATIENT
  Age: 82 Year
  Sex: Male

DRUGS (11)
  1. CEFUROXIME AXETIL [Suspect]
     Active Substance: CEFUROXIME AXETIL
     Indication: Cystitis noninfective
     Dosage: 250 MILLIGRAM, BID
     Route: 048
     Dates: start: 20210511
  2. ALFUZOSIN [Concomitant]
     Active Substance: ALFUZOSIN
     Indication: Product used for unknown indication
     Dosage: UNK
     Route: 065
  3. DICLOFENAC SODIUM [Concomitant]
     Active Substance: DICLOFENAC SODIUM
     Indication: Product used for unknown indication
     Dosage: UNK
     Route: 065
  4. Dentipur Gel [Concomitant]
     Indication: Product used for unknown indication
     Dosage: UNK
     Route: 065
  5. ENSTILAR [Concomitant]
     Active Substance: BETAMETHASONE DIPROPIONATE\CALCIPOTRIENE HYDRATE
     Indication: Product used for unknown indication
     Dosage: UNK
     Route: 065
  6. Fenoterol Hydrobromide, Ipratropium Bromide [Concomitant]
     Indication: Product used for unknown indication
     Dosage: UNK
     Route: 065
  7. FENTANYL [Concomitant]
     Active Substance: FENTANYL
     Indication: Product used for unknown indication
     Dosage: UNK
     Route: 065
  8. PREGABALIN [Concomitant]
     Active Substance: PREGABALIN
     Indication: Product used for unknown indication
     Dosage: UNK
     Route: 065
  9. Prednitop Creme [Concomitant]
     Indication: Product used for unknown indication
     Dosage: UNK
     Route: 065
  10. OLODATEROL HYDROCHLORIDE\TIOTROPIUM BROMIDE MONOHYDRATE [Concomitant]
     Active Substance: OLODATEROL HYDROCHLORIDE\TIOTROPIUM BROMIDE MONOHYDRATE
     Indication: Product used for unknown indication
     Dosage: UNK
     Route: 065
  11. XARELTO [Concomitant]
     Active Substance: RIVAROXABAN
     Indication: Product used for unknown indication
     Dosage: UNK
     Route: 065

REACTIONS (4)
  - Tongue discolouration [Recovered/Resolved]
  - Tooth discolouration [Recovering/Resolving]
  - Lip discolouration [Recovered/Resolved]
  - Tongue injury [Recovered/Resolved]

NARRATIVE: CASE EVENT DATE: 20210514
